FAERS Safety Report 15854284 (Version 1)
Quarter: 2019Q1

REPORT INFORMATION
  Report Type: Spontaneous
  Country: US (occurrence: US)
  Receive Date: 20190121
  Receipt Date: 20190121
  Transmission Date: 20190417
  Serious: Yes (Disabling)
  Sender: FDA-Public Use
  Company Number: None

PATIENT
  Age: 41 Year
  Sex: Female

DRUGS (1)
  1. LAMICTAL [Suspect]
     Active Substance: LAMOTRIGINE
     Indication: ANXIETY
     Route: 048

REACTIONS (8)
  - Anxiety [None]
  - Decreased appetite [None]
  - Anger [None]
  - Depression suicidal [None]
  - Weight decreased [None]
  - Irritability [None]
  - Nausea [None]
  - Pain [None]

NARRATIVE: CASE EVENT DATE: 20190121
